FAERS Safety Report 8185696-3 (Version None)
Quarter: 2012Q1

REPORT INFORMATION
  Report Type: 
  Country: None (occurrence: None)
  Receive Date: 20120305
  Receipt Date: 20120224
  Transmission Date: 20120608
  Serious: Yes (Other)
  Sender: FDA-Public Use
  Company Number: US-BAXTER-2012BH005493

PATIENT
  Age: 51 Year
  Sex: Female

DRUGS (1)
  1. SODIUM CHLORIDE 0.9% IN PLASTIC CONTAINER [Suspect]
     Indication: PRODUCT USED FOR UNKNOWN INDICATION
     Route: 042
     Dates: start: 20120215

REACTIONS (5)
  - DYSPNOEA [None]
  - WHEEZING [None]
  - ERYTHEMA [None]
  - FLUSHING [None]
  - CYANOSIS [None]
